FAERS Safety Report 11994238 (Version 1)
Quarter: 2016Q1

REPORT INFORMATION
  Report Type: Spontaneous
  Country: US (occurrence: US)
  Receive Date: 20160203
  Receipt Date: 20160203
  Transmission Date: 20160526
  Serious: No
  Sender: FDA-Public Use
  Company Number: US-UCBSA-2015029939

PATIENT
  Sex: Male
  Weight: 137 kg

DRUGS (2)
  1. KEPPRA [Suspect]
     Active Substance: LEVETIRACETAM
     Indication: SEIZURE
     Dosage: 750 MG, 4X/DAY (QID) (750 MG 2 TABLET, TWICE DAILY)
     Dates: end: 2015
  2. KEPPRA [Suspect]
     Active Substance: LEVETIRACETAM
     Dosage: 750 MG, 4X/DAY (QID)
     Dates: start: 2015

REACTIONS (2)
  - Treatment noncompliance [Unknown]
  - Essential tremor [Not Recovered/Not Resolved]
